FAERS Safety Report 24965720 (Version 1)
Quarter: 2025Q1

REPORT INFORMATION
  Report Type: Spontaneous
  Country: US (occurrence: None)
  Receive Date: 20250211
  Receipt Date: 20250211
  Transmission Date: 20250409
  Serious: Yes (Life-Threatening, Hospitalization, Disabling)
  Sender: FDA-CTU
  Company Number: None

PATIENT
  Age: 20 Year
  Sex: Male
  Weight: 90.72 kg

DRUGS (7)
  1. XANAX [Suspect]
     Active Substance: ALPRAZOLAM
  2. PAXIL [Suspect]
     Active Substance: PAROXETINE HYDROCHLORIDE
  3. Lamictyl [Concomitant]
  4. ZYPREXA [Concomitant]
     Active Substance: OLANZAPINE
  5. COGENTIN [Concomitant]
     Active Substance: BENZTROPINE MESYLATE
  6. Men^s Daily Vitamin Supplement [Concomitant]
  7. DIETARY SUPPLEMENT [Concomitant]
     Active Substance: DIETARY SUPPLEMENT

REACTIONS (4)
  - Mental disorder [None]
  - Schizoaffective disorder bipolar type [None]
  - Schizoaffective disorder [None]
  - Bipolar disorder [None]

NARRATIVE: CASE EVENT DATE: 19970301
